FAERS Safety Report 15330156 (Version 1)
Quarter: 2018Q3

REPORT INFORMATION
  Report Type: Spontaneous
  Country: US (occurrence: US)
  Receive Date: 20180824
  Receipt Date: 20180824
  Transmission Date: 20181010
  Serious: No
  Sender: FDA-Public Use
  Company Number: None

PATIENT
  Age: 7 Year
  Sex: Female
  Weight: 23.4 kg

DRUGS (6)
  1. OMEGA?3 ACIDS [Concomitant]
     Active Substance: OMEGA-3 FATTY ACIDS
  2. VITAMIN C [Concomitant]
     Active Substance: ASCORBIC ACID
  3. MIRALAX [Suspect]
     Active Substance: POLYETHYLENE GLYCOL 3350
     Indication: URINARY TRACT INFECTION
     Dosage: ?          QUANTITY:1 CAP FILLED TO LINE;?
     Route: 048
     Dates: start: 20180721, end: 20180812
  4. PROBIOTIC [Concomitant]
     Active Substance: PROBIOTICS NOS
  5. MIRALAX [Suspect]
     Active Substance: POLYETHYLENE GLYCOL 3350
     Indication: CONSTIPATION
     Dosage: ?          QUANTITY:1 CAP FILLED TO LINE;?
     Route: 048
     Dates: start: 20180721, end: 20180812
  6. GABAPENTIN. [Concomitant]
     Active Substance: GABAPENTIN

REACTIONS (3)
  - Aggression [None]
  - Anger [None]
  - Irritability [None]

NARRATIVE: CASE EVENT DATE: 20180817
